FAERS Safety Report 9912238 (Version 1)
Quarter: 2014Q1

REPORT INFORMATION
  Report Type: Spontaneous
  Country: US (occurrence: US)
  Receive Date: 20140220
  Receipt Date: 20140220
  Transmission Date: 20141002
  Serious: No
  Sender: FDA-Public Use
  Company Number: US-SA-2013SA119094

PATIENT
  Sex: Female

DRUGS (1)
  1. ZALTRAP [Suspect]
     Indication: COLORECTAL CANCER METASTATIC
     Route: 065

REACTIONS (2)
  - Blood glucose decreased [Recovering/Resolving]
  - Nausea [Recovering/Resolving]
